FAERS Safety Report 15543035 (Version 1)
Quarter: 2018Q4

REPORT INFORMATION
  Report Type: Report from Study
  Country: ES (occurrence: ES)
  Receive Date: 20181023
  Receipt Date: 20181023
  Transmission Date: 20190205
  Serious: Yes (Life-Threatening, Hospitalization)
  Sender: FDA-Public Use
  Company Number: ES-JNJFOC-20181028993

PATIENT
  Age: 24 Year
  Sex: Male

DRUGS (1)
  1. USTEKINUMAB [Suspect]
     Active Substance: USTEKINUMAB
     Indication: CROHN^S DISEASE
     Route: 058
     Dates: start: 20171226

REACTIONS (3)
  - Sepsis [Unknown]
  - Skin ulcer [Unknown]
  - Intestinal fistula [Unknown]

NARRATIVE: CASE EVENT DATE: 201802
